FAERS Safety Report 21612186 (Version 1)
Quarter: 2022Q4

REPORT INFORMATION
  Report Type: Spontaneous
  Country: NL (occurrence: NL)
  Receive Date: 20221118
  Receipt Date: 20221118
  Transmission Date: 20230113
  Serious: Yes (Life-Threatening, Other)
  Sender: FDA-Public Use
  Company Number: None

PATIENT
  Sex: Female
  Weight: 85 kg

DRUGS (2)
  1. BUPROPION [Suspect]
     Active Substance: BUPROPION
     Indication: Smoking cessation therapy
     Dosage: 300 MILLIGRAM DAILY;  150 MG TWICE A DAY  , MGA 150MG / BRAND NAME NOT SPECIFIED , FORM STRENGTH : 1
     Dates: start: 202111, end: 20211130
  2. BUPROPION [Suspect]
     Active Substance: BUPROPION
     Dosage: 150 MILLIGRAM DAILY; 1X PER DAY 150 MG , MGA 150MG / BRAND NAME NOT SPECIFIED , FORM STRENGTH : 150
     Dates: start: 20211101

REACTIONS (3)
  - Emotional disorder [Recovered/Resolved]
  - Depression [Recovered/Resolved]
  - Suicidal ideation [Recovered/Resolved]
